FAERS Safety Report 18109223 (Version 3)
Quarter: 2021Q2

REPORT INFORMATION
  Report Type: Spontaneous
  Country: US (occurrence: US)
  Receive Date: 20200804
  Receipt Date: 20210625
  Transmission Date: 20210717
  Serious: Yes (Other)
  Sender: FDA-Public Use
  Company Number: US-GW PHARMA-202007USGW02677

PATIENT

DRUGS (1)
  1. EPIDIOLEX [Suspect]
     Active Substance: CANNABIDIOL
     Indication: TUBEROUS SCLEROSIS COMPLEX
     Dosage: UNK
     Route: 048
     Dates: start: 201710

REACTIONS (7)
  - Petit mal epilepsy [Recovering/Resolving]
  - Nausea [Recovered/Resolved]
  - Diarrhoea [Recovering/Resolving]
  - Therapeutic response unexpected [Unknown]
  - Product use in unapproved indication [Unknown]
  - Change in seizure presentation [Not Recovered/Not Resolved]
  - Weight decreased [Unknown]
